FAERS Safety Report 5092936-6 (Version None)
Quarter: 2006Q3

REPORT INFORMATION
  Report Type: 
  Country: None (occurrence: None)
  Receive Date: 20060830
  Receipt Date: 20060824
  Transmission Date: 20061208
  Serious: Yes (Life-Threatening, Hospitalization)
  Sender: FDA-Public Use
  Company Number: 2006SE04575

PATIENT
  Age: 37 Year
  Sex: Female

DRUGS (3)
  1. ZOMIG-ZMT [Suspect]
     Indication: HEADACHE
     Dosage: 1-2 TABLETS
     Route: 048
     Dates: start: 20060209
  2. ZOMIG-ZMT [Suspect]
     Dosage: 1-2 TABLETS
     Route: 048
     Dates: start: 20060218
  3. BURANA [Concomitant]

REACTIONS (3)
  - CARDIAC ARREST [None]
  - EXTRASYSTOLES [None]
  - VENTRICULAR FIBRILLATION [None]
